FAERS Safety Report 19883240 (Version 1)
Quarter: 2021Q3

REPORT INFORMATION
  Report Type: Other
  Country: US (occurrence: US)
  Receive Date: 20210926
  Receipt Date: 20210926
  Transmission Date: 20211014
  Serious: Yes (Hospitalization, Other)
  Sender: FDA-Public Use
  Company Number: US-INTERCEPT-PM2021002654

PATIENT
  Age: 60 Year
  Sex: Female
  Weight: 53.6 kg

DRUGS (16)
  1. CLOPIDOGREL [Concomitant]
     Active Substance: CLOPIDOGREL BISULFATE
     Dosage: 75 MILLIGRAM, QD
     Route: 048
  2. INSULIN GLARGINE [Concomitant]
     Active Substance: INSULIN GLARGINE
     Dosage: INJECT 22 UNITS INTO THE SKIN NIGHTLY AT BEDTIME
     Route: 023
  3. POLYETHYLENE GLYCOL 3350. [Concomitant]
     Active Substance: POLYETHYLENE GLYCOL 3350
  4. INSULIN GLARGINE [Concomitant]
     Active Substance: INSULIN GLARGINE
     Dosage: INJECT 22 UNITS INTO THE SKIN EVERY MORNING
     Route: 023
  5. NOVOLOG [Concomitant]
     Active Substance: INSULIN ASPART
     Dosage: 5?30 UNITS, TID BEFORE MEALS; 5 UNITS WITH BREAKFAST AND DINNER AND 6 UNITS WITH LUNCH PLUS CORRECTI
     Route: 023
     Dates: end: 2021
  6. OCALIVA [Suspect]
     Active Substance: OBETICHOLIC ACID
     Indication: PRIMARY BILIARY CHOLANGITIS
     Dosage: 5 MILLIGRAM, QD
     Route: 048
     Dates: start: 20210210, end: 2021
  7. OCALIVA [Suspect]
     Active Substance: OBETICHOLIC ACID
     Dosage: 5 MILLIGRAM, QD
     Route: 048
     Dates: start: 2021
  8. ASPIRIN [ACETYLSALICYLIC ACID] [Concomitant]
     Active Substance: ASPIRIN
     Dosage: 81 MILLIGRAM, QD
     Route: 048
  9. LIPITOR [Concomitant]
     Active Substance: ATORVASTATIN CALCIUM
  10. URSODIOL. [Concomitant]
     Active Substance: URSODIOL
     Dosage: 250 MILLIGRAM, TID
     Route: 048
     Dates: end: 2021
  11. LANTUS [Concomitant]
     Active Substance: INSULIN GLARGINE
  12. ONE TOUCH [Concomitant]
     Active Substance: DEXTROSE
     Dosage: 1 STRIP, 3 TIMES DAILY BEFORE MEALS
     Route: 050
     Dates: end: 2021
  13. INSULIN GLARGINE [Concomitant]
     Active Substance: INSULIN GLARGINE
     Dosage: INJECT 24 UNITS INTO THE SKIN NIGHTLY AT BEDTIME
     Route: 023
  14. TRULICITY [Concomitant]
     Active Substance: DULAGLUTIDE
     Dosage: 1.5 MILLIGRAM, QW
     Route: 023
  15. GABAPENTIN. [Concomitant]
     Active Substance: GABAPENTIN
     Dosage: 300 MILLIGRAM, TID
     Route: 048
  16. CEFADROXIL. [Concomitant]
     Active Substance: CEFADROXIL
     Dosage: 500 MILLIGRAM, BID
     Route: 048
     Dates: end: 2021

REACTIONS (34)
  - Arteriosclerosis [Unknown]
  - Restless legs syndrome [Unknown]
  - Renal cyst [Unknown]
  - Leukocytosis [Unknown]
  - Rehabilitation therapy [Recovered/Resolved]
  - Cholelithiasis [Unknown]
  - Blood glucose abnormal [Unknown]
  - Cystitis [Unknown]
  - Urinary tract infection [Unknown]
  - Renal mass [Unknown]
  - Cough [Recovered/Resolved]
  - Vascular calcification [Unknown]
  - Ataxia [Unknown]
  - Back pain [Unknown]
  - Pain [Recovered/Resolved]
  - Arthralgia [Unknown]
  - Renal hamartoma [Unknown]
  - Mastoiditis [Unknown]
  - Dysphagia [Unknown]
  - Orthostatic hypotension [Unknown]
  - Disturbance in attention [Unknown]
  - Diarrhoea [Unknown]
  - Fatigue [Unknown]
  - Therapy interrupted [Recovered/Resolved]
  - Bladder dilatation [Unknown]
  - Insomnia [Unknown]
  - Sinusitis [Unknown]
  - Dizziness [Unknown]
  - Nephrolithiasis [Unknown]
  - Ischaemic stroke [Recovering/Resolving]
  - Carotid artery stenosis [Unknown]
  - Joint effusion [Unknown]
  - Fall [Unknown]
  - Pain in extremity [Unknown]

NARRATIVE: CASE EVENT DATE: 2021
